FAERS Safety Report 6946348-8 (Version None)
Quarter: 2010Q3

REPORT INFORMATION
  Report Type: 
  Country: None (occurrence: None)
  Receive Date: 20100827
  Receipt Date: 20091019
  Transmission Date: 20110219
  Serious: No
  Sender: FDA-Public Use
  Company Number: US-ABBOTT-09P-163-0586345-00

PATIENT
  Sex: Male
  Weight: 75.818 kg

DRUGS (8)
  1. NIASPAN [Suspect]
     Indication: HYPERCHOLESTEROLAEMIA
     Dates: start: 20080101
  2. ZETIA [Concomitant]
     Indication: BLOOD CHOLESTEROL INCREASED
  3. DOXAZIN [Concomitant]
     Indication: HYPERTENSION
  4. COZAAR [Concomitant]
     Indication: HYPERTENSION
  5. ASPIRIN [Concomitant]
     Indication: CARDIOVASCULAR EVENT PROPHYLAXIS
  6. HYDROCHLOROTHIAZIDE [Concomitant]
     Indication: HYPERTENSION
  7. ALLEGRA [Concomitant]
     Indication: HYPERSENSITIVITY
  8. NASONEX [Concomitant]
     Indication: HYPERSENSITIVITY

REACTIONS (4)
  - DIARRHOEA [None]
  - FLUSHING [None]
  - LIPIDS INCREASED [None]
  - MEDICATION RESIDUE [None]
